FAERS Safety Report 6403443-X (Version None)
Quarter: 2009Q4

REPORT INFORMATION
  Report Type: 
  Country: None (occurrence: None)
  Receive Date: 20091016
  Receipt Date: 20091008
  Transmission Date: 20100525
  Serious: Yes (Death)
  Sender: FDA-Public Use
  Company Number: JP-BAYER-200913557BYL

PATIENT
  Age: 82 Year
  Sex: Male
  Weight: 45 kg

DRUGS (12)
  1. NEXAVAR [Suspect]
     Indication: HEPATIC NEOPLASM MALIGNANT
     Dosage: TOTAL DAILY DOSE: 800 MG  UNIT DOSE: 200 MG
     Route: 048
     Dates: start: 20090810, end: 20090917
  2. ITRIZOLE [Suspect]
     Indication: GLOSSITIS
     Dosage: UNIT DOSE: 1 %
     Route: 042
     Dates: start: 20090916
  3. MAGLAX [Concomitant]
     Indication: CONSTIPATION
     Dosage: SINCE BEFORE ADMINISTRATION
     Route: 048
  4. PROSTAL [Concomitant]
     Dosage: SINCE BEFORE ADMINISTRATION
     Route: 048
  5. URIEF [Concomitant]
     Dosage: SINCE BEFORE ADMINISTRATION
     Route: 048
  6. AMLODIPINE [Concomitant]
     Dosage: SINCE BEFORE ADMINISTRATION
     Route: 048
  7. INDERAL [Concomitant]
     Dosage: SINCE BEFORE ADMINISTRATION
     Route: 048
  8. PURSENNID [Concomitant]
     Dosage: SINCE BEFORE ADMINISTRATION
     Route: 048
  9. OXYCONTIN [Concomitant]
     Dosage: SINCE BEFORE ADMINISTRATION
     Route: 048
  10. NEO-MINOPHAGEN C [Concomitant]
     Dosage: SINCE BEFORE ADMINISTRATION
     Route: 042
  11. UREPEARL [Concomitant]
     Indication: PROPHYLAXIS
     Route: 061
     Dates: start: 20090807
  12. HEPARIN NA LOCK [Concomitant]
     Dosage: UNIT DOSE: 10 U
     Route: 042
     Dates: start: 20090817, end: 20090928

REACTIONS (6)
  - ABDOMINAL PAIN [None]
  - BLOOD AMYLASE INCREASED [None]
  - C-REACTIVE PROTEIN INCREASED [None]
  - FUNGAL INFECTION [None]
  - GLOSSITIS [None]
  - INTERSTITIAL LUNG DISEASE [None]
